FAERS Safety Report 26208860 (Version 1)
Quarter: 2025Q4

REPORT INFORMATION
  Report Type: Spontaneous
  Country: AU (occurrence: AU)
  Receive Date: 20251229
  Receipt Date: 20251229
  Transmission Date: 20260119
  Serious: Yes (Other)
  Sender: DR REDDYS
  Company Number: AU-AUS-AUS/2025/12/019706

PATIENT
  Age: 55 Year
  Sex: Female

DRUGS (2)
  1. ONDANSETRON [Suspect]
     Active Substance: ONDANSETRON
     Indication: Product used for unknown indication
  2. EPOETIN ALFA [Suspect]
     Active Substance: ERYTHROPOIETIN
     Indication: Product used for unknown indication

REACTIONS (1)
  - Febrile neutropenia [Unknown]
